FAERS Safety Report 6826687-1 (Version None)
Quarter: 2010Q3

REPORT INFORMATION
  Report Type: 
  Country: None (occurrence: None)
  Receive Date: 20100709
  Receipt Date: 20100701
  Transmission Date: 20110219
  Serious: Yes (Other)
  Sender: FDA-Public Use
  Company Number: BR-PFIZER INC-2010082856

PATIENT
  Sex: Female
  Weight: 62 kg

DRUGS (3)
  1. DEPO-PROVERA [Suspect]
     Indication: CONTRACEPTION
     Dosage: 150 MG, EVERY 3 MONTHS
     Route: 030
  2. FLUOXETINE [Concomitant]
     Dosage: 40 MG, UNK
  3. PAMELOR [Concomitant]
     Dosage: 75 MG, UNK

REACTIONS (2)
  - AMENORRHOEA [None]
  - FLUID RETENTION [None]
